FAERS Safety Report 8344452 (Version 6)
Quarter: 2013Q2

REPORT INFORMATION
  Report Type: Spontaneous
  Country: JP (occurrence: JP)
  Receive Date: 20120119
  Receipt Date: 20130425
  Transmission Date: 20140414
  Serious: Yes (Death, Life-Threatening)
  Sender: FDA-Public Use
  Company Number: JP-PFIZER INC-2012013824

PATIENT
  Age: 83 Year
  Sex: Male
  Weight: 50.9 kg

DRUGS (11)
  1. CELECOX [Suspect]
     Indication: BACK PAIN
     Dosage: 100 MG, 2X/DAY
     Route: 048
     Dates: start: 20110324, end: 20110411
  2. BAYASPIRIN [Suspect]
     Indication: ANGINA PECTORIS
     Dosage: 100 MG, DAILY
     Route: 048
     Dates: start: 1998, end: 201008
  3. BAYASPIRIN [Suspect]
     Dosage: 100 MG, UID/QD
     Route: 048
     Dates: end: 20110126
  4. CYTOTEC [Concomitant]
     Dosage: UNK
     Dates: start: 20110214, end: 20110411
  5. FERROMIA [Concomitant]
     Dosage: UNK
     Dates: start: 20110214, end: 20110411
  6. MUCOSTA [Concomitant]
     Dosage: UNK
     Dates: start: 20110214, end: 20110411
  7. TAKEPRON [Concomitant]
     Indication: GASTROOESOPHAGEAL REFLUX DISEASE
     Dosage: UNK
     Dates: start: 20110222, end: 20110411
  8. MAGMITT [Concomitant]
     Indication: CONSTIPATION
     Dosage: UNK
     Dates: start: 20110222, end: 20110411
  9. PURSENNID [Concomitant]
     Indication: CONSTIPATION
     Dosage: UNK
     Dates: start: 20110222, end: 20110411
  10. FLUMARIN [Concomitant]
     Indication: PERITONITIS
     Dosage: UNK
     Dates: start: 20110124, end: 20110411
  11. TARGOCID [Concomitant]
     Indication: PERITONITIS
     Dosage: UNK
     Dates: start: 20110326, end: 20110404

REACTIONS (4)
  - Pneumonia aspiration [Fatal]
  - Disseminated intravascular coagulation [Fatal]
  - Small intestinal perforation [Fatal]
  - Intentional drug misuse [Unknown]
